FAERS Safety Report 8295008-2 (Version None)
Quarter: 2012Q2

REPORT INFORMATION
  Report Type: 
  Country: None (occurrence: None)
  Receive Date: 20120418
  Receipt Date: 20120410
  Transmission Date: 20120825
  Serious: Yes (Hospitalization)
  Sender: FDA-Public Use
  Company Number: JP-ASTRAZENECA-2012SE20154

PATIENT
  Age: 68 Year
  Sex: Male
  Weight: 57 kg

DRUGS (14)
  1. MAGNESIUM OXIDE [Concomitant]
     Route: 048
  2. BETAMETHASONE [Concomitant]
     Dosage: NUMBER OF SEPARATE DOSAGES UNKNOWN
     Route: 054
  3. BULKOSE [Concomitant]
     Route: 048
  4. JANUVIA [Concomitant]
     Route: 048
  5. PAXIL [Concomitant]
     Route: 048
  6. ZOLPIDEM [Concomitant]
     Route: 048
  7. ABILIFY [Concomitant]
     Route: 048
  8. TRAZODONE HYDROCHLORIDE [Concomitant]
     Route: 048
  9. CRESTOR [Suspect]
     Indication: DYSLIPIDAEMIA
     Route: 048
     Dates: end: 20120308
  10. LAC-B [Concomitant]
     Route: 048
  11. FRANDOL S [Concomitant]
     Dosage: NUMBER OF SEPARATE DOSAGES UNKNOWN
     Route: 062
  12. TAMSULOSIN HCL [Concomitant]
     Route: 048
  13. ESTAZOLAM [Concomitant]
     Route: 048
  14. VALERIN [Concomitant]
     Route: 048

REACTIONS (3)
  - MUSCULAR WEAKNESS [None]
  - MYALGIA [None]
  - ASTHENIA [None]
